FAERS Safety Report 6578353-8 (Version None)
Quarter: 2010Q1

REPORT INFORMATION
  Report Type: 
  Country: None (occurrence: None)
  Receive Date: 20100211
  Receipt Date: 20100201
  Transmission Date: 20100710
  Serious: Yes (Hospitalization, Other)
  Sender: FDA-Public Use
  Company Number: US-PFIZER INC-2009304535

PATIENT
  Sex: Female

DRUGS (2)
  1. CELEBREX [Suspect]
     Dosage: UNK
     Dates: start: 20070101
  2. PLAVIX [Suspect]
     Dosage: UNK
     Dates: start: 20091220

REACTIONS (3)
  - CORONARY ARTERY BYPASS [None]
  - GASTRIC BYPASS [None]
  - HAEMORRHAGE [None]
